FAERS Safety Report 9014077 (Version 1)
Quarter: 2013Q1

REPORT INFORMATION
  Report Type: Report from Study
  Country: US (occurrence: US)
  Receive Date: 20130115
  Receipt Date: 20130115
  Transmission Date: 20140127
  Serious: Yes (Hospitalization)
  Sender: FDA-Public Use
  Company Number: US-ROCHE-1170718

PATIENT
  Sex: Female
  Weight: 67.19 kg

DRUGS (3)
  1. XELODA [Suspect]
     Indication: BREAST CANCER METASTATIC
     Route: 065
     Dates: start: 2010, end: 20101129
  2. XELODA [Suspect]
     Route: 065
     Dates: start: 20120301
  3. XELODA [Suspect]
     Route: 048
     Dates: start: 20121010

REACTIONS (9)
  - Bone cancer [Unknown]
  - Fall [Unknown]
  - Facial bones fracture [Unknown]
  - Diarrhoea [Unknown]
  - Dizziness [Unknown]
  - Pain [Unknown]
  - Drug dose omission [Unknown]
  - Tumour marker increased [Unknown]
  - Exophthalmos [Unknown]
